FAERS Safety Report 9292281 (Version 1)
Quarter: 2013Q2

REPORT INFORMATION
  Report Type: Spontaneous
  Country: US (occurrence: None)
  Receive Date: 20130515
  Receipt Date: 20130515
  Transmission Date: 20140414
  Serious: Yes (Death)
  Sender: FDA-Public Use
  Company Number: None

PATIENT
  Age: 3 Year
  Sex: Male
  Weight: 11.9 kg

DRUGS (12)
  1. AVASTIN [Suspect]
     Indication: CHOROID PLEXUS CARCINOMA
     Dosage: 120 MG  DAYS 1 AND 15  IV
     Route: 042
     Dates: start: 20120314, end: 20130220
  2. KEPPRA [Concomitant]
  3. COLACE [Concomitant]
  4. BACTRIM [Concomitant]
  5. ZOFRAN [Concomitant]
  6. ATIVAN [Concomitant]
  7. ATIVAN [Concomitant]
  8. REGLAN [Concomitant]
  9. OXYCODONE [Concomitant]
  10. TEMOZOLOMIDE [Concomitant]
  11. IRINOTECAN [Concomitant]
  12. CYTARABINE [Concomitant]

REACTIONS (4)
  - Choroid plexus carcinoma [None]
  - Malignant neoplasm progression [None]
  - Tumour haemorrhage [None]
  - Respiratory failure [None]
